APPROVED DRUG PRODUCT: OMIDRIA
Active Ingredient: KETOROLAC TROMETHAMINE; PHENYLEPHRINE HYDROCHLORIDE
Strength: EQ 0.3% BASE;EQ 1% BASE
Dosage Form/Route: SOLUTION;IRRIGATION
Application: N205388 | Product #001 | TE Code: AT
Applicant: RAYNER SURGICAL INC
Approved: May 30, 2014 | RLD: Yes | RS: Yes | Type: RX

PATENTS:
Patent 9486406 | Expires: Oct 23, 2033
Patent 9066856 | Expires: Oct 23, 2033
Patent 9855246 | Expires: Oct 23, 2033
Patent 9066856*PED | Expires: Apr 23, 2034
Patent 9486406*PED | Expires: Apr 23, 2034